FAERS Safety Report 10880658 (Version 4)
Quarter: 2017Q4

REPORT INFORMATION
  Report Type: Report from Study
  Country: BR (occurrence: BR)
  Receive Date: 20150303
  Receipt Date: 20171207
  Transmission Date: 20180320
  Serious: Yes (Hospitalization, Other)
  Sender: FDA-Public Use
  Company Number: BR-ROCHE-1544721

PATIENT
  Sex: Female
  Weight: 52 kg

DRUGS (16)
  1. GLIFAGE [Concomitant]
     Active Substance: METFORMIN HYDROCHLORIDE
     Indication: DIABETES MELLITUS
     Route: 065
  2. ACTONEL [Concomitant]
     Active Substance: RISEDRONATE SODIUM
  3. MABTHERA [Suspect]
     Active Substance: RITUXIMAB
     Indication: RHEUMATOID ARTHRITIS
     Route: 042
     Dates: start: 20100901
  4. MABTHERA [Suspect]
     Active Substance: RITUXIMAB
     Route: 042
     Dates: start: 201201
  5. MABTHERA [Suspect]
     Active Substance: RITUXIMAB
     Route: 042
     Dates: start: 20101018
  6. MABTHERA [Suspect]
     Active Substance: RITUXIMAB
     Route: 042
     Dates: start: 201305
  7. LIPIDIL [Concomitant]
     Active Substance: FENOFIBRATE
  8. MABTHERA [Suspect]
     Active Substance: RITUXIMAB
     Route: 042
     Dates: start: 201401
  9. MIRTAZAPINE. [Concomitant]
     Active Substance: MIRTAZAPINE
     Indication: DEPRESSION
  10. MABTHERA [Suspect]
     Active Substance: RITUXIMAB
     Dosage: MOST RECENT INFUSION ON 28/JUN/2016
     Route: 042
     Dates: start: 20160614
  11. PROLIA [Suspect]
     Active Substance: DENOSUMAB
     Indication: OSTEOPOROSIS
     Route: 065
     Dates: start: 2015
  12. MABTHERA [Suspect]
     Active Substance: RITUXIMAB
     Route: 042
     Dates: start: 201209
  13. ATENOLOL. [Concomitant]
     Active Substance: ATENOLOL
     Indication: HYPERTENSION
     Route: 065
  14. ANGIPRESS (BRAZIL) [Concomitant]
     Indication: HYPERTENSION
     Route: 065
  15. MABTHERA [Suspect]
     Active Substance: RITUXIMAB
     Route: 042
     Dates: start: 201407
  16. JANUVIA [Concomitant]
     Active Substance: SITAGLIPTIN PHOSPHATE
     Indication: DIABETES MELLITUS
     Route: 065

REACTIONS (12)
  - Arthritis [Recovering/Resolving]
  - Arthropathy [Recovering/Resolving]
  - Haemorrhage [Unknown]
  - Rheumatoid arthritis [Unknown]
  - Post procedural discomfort [Unknown]
  - Postoperative wound infection [Recovering/Resolving]
  - Cartilage atrophy [Recovering/Resolving]
  - Fall [Unknown]
  - Hypothyroidism [Unknown]
  - Tooth disorder [Unknown]
  - Haematoma [Unknown]
  - Device related infection [Recovering/Resolving]
